FAERS Safety Report 13842596 (Version 1)
Quarter: 2017Q3

REPORT INFORMATION
  Report Type: Spontaneous
  Country: US (occurrence: US)
  Receive Date: 20170807
  Receipt Date: 20170807
  Transmission Date: 20171127
  Serious: No
  Sender: FDA-Public Use
  Company Number: None

PATIENT
  Age: 49 Year
  Sex: Female
  Weight: 88.65 kg

DRUGS (10)
  1. TAMOXIFEN [Concomitant]
     Active Substance: TAMOXIFEN
  2. HYDROXYZINE [Concomitant]
     Active Substance: HYDROXYZINE HYDROCHLORIDE
  3. EVEROLIMUS [Concomitant]
     Active Substance: EVEROLIMUS
  4. MULTI VITAMIN [Concomitant]
     Active Substance: VITAMINS
  5. VITAMIN B [Concomitant]
     Active Substance: VITAMIN B
  6. TRAZODONE [Suspect]
     Active Substance: TRAZODONE HYDROCHLORIDE
     Indication: SLEEP DISORDER
     Dosage: ?          QUANTITY:1 TABLET(S);?
     Route: 048
     Dates: start: 20170726, end: 20170806
  7. MELATONIN [Concomitant]
     Active Substance: MELATONIN
  8. VITAMIN D [Concomitant]
     Active Substance: CHOLECALCIFEROL
  9. ALVESCO [Concomitant]
     Active Substance: CICLESONIDE
  10. SEREVENT DISKUS [Concomitant]
     Active Substance: SALMETEROL XINAFOATE

REACTIONS (7)
  - Musculoskeletal stiffness [None]
  - Middle insomnia [None]
  - Vision blurred [None]
  - Memory impairment [None]
  - Arthralgia [None]
  - Balance disorder [None]
  - Muscle twitching [None]

NARRATIVE: CASE EVENT DATE: 20170803
